FAERS Safety Report 17883837 (Version 1)
Quarter: 2020Q2

REPORT INFORMATION
  Report Type: Spontaneous
  Country: FR (occurrence: FR)
  Receive Date: 20200611
  Receipt Date: 20200611
  Transmission Date: 20200714
  Serious: Yes (Hospitalization, Other)
  Sender: FDA-Public Use
  Company Number: FR-SUN PHARMACEUTICAL INDUSTRIES LTD-2020R1-246272

PATIENT
  Age: 59 Year
  Sex: Male

DRUGS (2)
  1. CHLOROQUINE. [Suspect]
     Active Substance: CHLOROQUINE
     Indication: CUTANEOUS LUPUS ERYTHEMATOSUS
     Dosage: 200 MILLIGRAM, DAILY
     Route: 065
  2. HYDROXYCHLOROQUINE [Suspect]
     Active Substance: HYDROXYCHLOROQUINE
     Indication: CUTANEOUS LUPUS ERYTHEMATOSUS
     Dosage: 400 MILLIGRAM, DAILY
     Route: 065

REACTIONS (6)
  - Ischaemic cardiomyopathy [Recovering/Resolving]
  - Syncope [Recovering/Resolving]
  - Muscle atrophy [Recovering/Resolving]
  - Musculoskeletal toxicity [Recovering/Resolving]
  - Cardiotoxicity [Recovering/Resolving]
  - Atrioventricular block complete [Recovering/Resolving]
